FAERS Safety Report 9357599 (Version 1)
Quarter: 2013Q2

REPORT INFORMATION
  Report Type: Spontaneous
  Country: FR (occurrence: None)
  Receive Date: 20130617
  Receipt Date: 20130617
  Transmission Date: 20140414
  Serious: Yes (Hospitalization)
  Sender: FDA-Public Use
  Company Number: 1747488

PATIENT
  Age: 40 Year
  Sex: Female

DRUGS (15)
  1. (VINCRISTINE SULFATE) [Suspect]
     Indication: B-CELL LYMPHOMA
     Dosage: INTRAVENOUS (NOT OTHERWISE SPECIFIED)
     Dates: start: 20111219, end: 20111219
  2. EVRA [Suspect]
     Indication: ORAL CONTRACEPTION
     Route: 062
  3. METHOTREXATE [Suspect]
     Indication: B-CELL LYMPHOMA
     Dosage: INTRADERMAL
     Dates: start: 20111219, end: 20111219
  4. (CORTICOSTEROIDS) [Suspect]
     Indication: B-CELL LYMPHOMA
     Dosage: INTRADERMAL
     Dates: start: 20111219, end: 20111219
  5. METHYLPREDNISOLONE HEMISUCCINATE [Suspect]
     Indication: B-CELL LYMPHOMA
     Dosage: INTRAVENOUS (NOT OTHERWISE SPECIFIED)
     Route: 042
     Dates: start: 20111219, end: 20111219
  6. MABTHERA [Suspect]
     Indication: B-CELL LYMPHOMA
     Dosage: INTRAVENOUS (NOT OTHERWISE SPECIFIED)
     Route: 042
     Dates: start: 20111219, end: 20111219
  7. DOXORUBICIN HYDROCHLORIDE [Suspect]
     Indication: B-CELL LYMPHOMA
     Dosage: INTRAVENOUS (NOT OTHERWISE SPECIFIED)
     Route: 042
     Dates: start: 20111219, end: 20111219
  8. ENDOXAN [Suspect]
     Indication: B-CELL LYMPHOMA
     Dosage: INTRAVENOUS (NOT OTHERWISE SPECIFIED)
     Route: 042
     Dates: start: 20111219, end: 20111219
  9. UROMITEXAN [Suspect]
     Dosage: TWICE\?INTRAVENOUS (NOT OTHERWISE SPECIFIED)
     Route: 042
     Dates: start: 20111219, end: 20111219
  10. (PARACETAMOL) [Concomitant]
  11. (GRANOCYTE) [Concomitant]
  12. (VALACICLOVIR) [Concomitant]
  13. (PREDNISONE ) [Concomitant]
  14. (VITAMIN B 12) [Concomitant]
  15. (ESOMEPRAZOLE [Concomitant]

REACTIONS (5)
  - Headache [None]
  - Vomiting [None]
  - VIIth nerve paralysis [None]
  - Hypoaesthesia [None]
  - Cerebral venous thrombosis [None]
